FAERS Safety Report 9291393 (Version 1)
Quarter: 2013Q2

REPORT INFORMATION
  Report Type: Spontaneous
  Country: US (occurrence: US)
  Receive Date: 20130515
  Receipt Date: 20130515
  Transmission Date: 20140414
  Serious: No
  Sender: FDA-Public Use
  Company Number: US-BAUSCH-BL-2013-000648

PATIENT
  Age: 74 Year
  Sex: Male

DRUGS (4)
  1. BROMDAY 0.09% [Suspect]
     Indication: CATARACT OPERATION
     Route: 047
     Dates: start: 20120616
  2. VIGAMOX [Concomitant]
     Indication: CATARACT OPERATION
     Route: 047
     Dates: start: 20120616
  3. COMBIGAN [Concomitant]
     Indication: CATARACT OPERATION
     Route: 047
  4. LUMIGAN [Concomitant]
     Indication: GLAUCOMA
     Route: 047

REACTIONS (1)
  - Eye irritation [Recovered/Resolved]
